FAERS Safety Report 6492074-1 (Version None)
Quarter: 2009Q4

REPORT INFORMATION
  Report Type: 
  Country: None (occurrence: None)
  Receive Date: 20091125
  Receipt Date: 20090617
  Transmission Date: 20100525
  Serious: Yes (Other)
  Sender: FDA-Public Use
  Company Number: 2009BH009877

PATIENT
  Age: 64 Year
  Sex: Male

DRUGS (9)
  1. DIANEAL [Suspect]
     Indication: PERITONEAL DIALYSIS
     Dosage: 12 L;EVERY DAY; IP
     Route: 033
     Dates: start: 20070625
  2. EXTRANEAL [Suspect]
     Indication: PERITONEAL DIALYSIS
     Dosage: 2.5 L;EVERY DAY; IP
     Route: 033
     Dates: start: 20070625
  3. NEURONTIN [Concomitant]
  4. BACTRIM DS [Concomitant]
  5. AVODART [Concomitant]
  6. MAGNESIUM OXIDE [Concomitant]
  7. RENA-VITE [Concomitant]
  8. ROCALTROL [Concomitant]
  9. ARANESP [Concomitant]

REACTIONS (1)
  - PERITONITIS BACTERIAL [None]
